FAERS Safety Report 16427544 (Version 4)
Quarter: 2019Q4

REPORT INFORMATION
  Report Type: Spontaneous
  Country: PL (occurrence: PL)
  Receive Date: 20190613
  Receipt Date: 20191206
  Transmission Date: 20200122
  Serious: Yes (Hospitalization)
  Sender: FDA-Public Use
  Company Number: PL-JNJFOC-20190616804

PATIENT
  Age: 52 Year
  Sex: Male

DRUGS (10)
  1. DARUNAVIR [Suspect]
     Active Substance: DARUNAVIR
     Indication: HIV INFECTION
     Route: 048
  2. DARUNAVIR [Suspect]
     Active Substance: DARUNAVIR
     Indication: HIV INFECTION
  3. RITONAVIR. [Suspect]
     Active Substance: RITONAVIR
     Indication: HIV INFECTION
     Route: 065
  4. TENOFOVIR DISOPROXIL FUMARATE. [Suspect]
     Active Substance: TENOFOVIR DISOPROXIL FUMARATE
     Indication: ANTIVIRAL TREATMENT
  5. EMTRICITABINE W/TENOFOVIR DISOPROXIL FUMARATE [Suspect]
     Active Substance: EMTRICITABINE\TENOFOVIR DISOPROXIL
     Indication: HIV INFECTION
     Dosage: 200MG/300MG/DAY
     Route: 065
  6. ATAZANAVIR. [Concomitant]
     Active Substance: ATAZANAVIR
     Indication: HIV INFECTION
     Route: 065
  7. RITONAVIR. [Suspect]
     Active Substance: RITONAVIR
     Indication: ANTIVIRAL TREATMENT
  8. TENOFOVIR DISOPROXIL FUMARATE. [Suspect]
     Active Substance: TENOFOVIR DISOPROXIL FUMARATE
     Indication: ANTIVIRAL TREATMENT
     Route: 065
  9. LAMIVUDINE AND ZIDOVUDINE [Suspect]
     Active Substance: LAMIVUDINE\ZIDOVUDINE
     Indication: HIV INFECTION
     Dosage: 150/300 MG TWICE A DAY
     Route: 065
  10. LAMIVUDINE AND ZIDOVUDINE [Suspect]
     Active Substance: LAMIVUDINE\ZIDOVUDINE
     Indication: ANTIVIRAL TREATMENT

REACTIONS (16)
  - Cerebellar syndrome [Recovered/Resolved]
  - Confusional state [Recovered/Resolved]
  - Pleocytosis [Recovered/Resolved]
  - Immune reconstitution inflammatory syndrome [Recovered/Resolved]
  - Headache [Recovered/Resolved]
  - Cranial nerve palsies multiple [Recovered/Resolved]
  - Facial paralysis [Recovered/Resolved]
  - Relapsing fever [Recovered/Resolved]
  - Hyperproteinaemia [Recovered/Resolved]
  - Condition aggravated [Recovered/Resolved]
  - Vth nerve injury [Recovered/Resolved]
  - Nervous system disorder [Recovered/Resolved]
  - Psychomotor retardation [Recovered/Resolved]
  - VIIIth nerve injury [Recovered/Resolved]
  - Encephalitis [Recovered/Resolved]
  - Pathogen resistance [Recovered/Resolved]
